FAERS Safety Report 4945497-3 (Version None)
Quarter: 2006Q1

REPORT INFORMATION
  Report Type: 
  Country: None (occurrence: None)
  Receive Date: 20060316
  Receipt Date: 20060308
  Transmission Date: 20060701
  Serious: Yes (Other)
  Sender: FDA-Public Use
  Company Number: 2006UW03975

PATIENT
  Age: 19024 Day
  Sex: Female

DRUGS (8)
  1. IRESSA [Suspect]
     Indication: BREAST CANCER
     Route: 048
     Dates: start: 20050329, end: 20060122
  2. NOLVADEX [Suspect]
     Indication: BREAST CANCER
     Route: 048
     Dates: start: 20050329, end: 20060201
  3. TEGRETOL [Concomitant]
     Indication: EPILEPSY
     Route: 048
     Dates: start: 19840101
  4. TEGRETOL [Concomitant]
     Route: 048
     Dates: start: 20051220
  5. ADVIL [Concomitant]
     Indication: ARTHRITIS
     Route: 048
     Dates: start: 20041201
  6. MOTRIN [Concomitant]
     Indication: ARTHRITIS
     Route: 048
     Dates: start: 20041201
  7. BONEFOS [Concomitant]
     Indication: ARTHRITIS
     Route: 048
     Dates: start: 20050301
  8. BONEFOS [Concomitant]
     Indication: BONE PAIN
     Route: 048
     Dates: start: 20050301

REACTIONS (2)
  - MALIGNANT NEOPLASM PROGRESSION [None]
  - THROMBOCYTOPENIA [None]
